FAERS Safety Report 21124310 (Version 22)
Quarter: 2024Q1

REPORT INFORMATION
  Report Type: Spontaneous
  Country: GB (occurrence: GB)
  Receive Date: 20220725
  Receipt Date: 20240312
  Transmission Date: 20240409
  Serious: Yes (Death, Hospitalization, Congenital Anomaly, Other)
  Sender: FDA-Public Use
  Company Number: GB-CIPLA LTD.-2022GB04466

PATIENT

DRUGS (91)
  1. TENOFOVIR [Suspect]
     Active Substance: TENOFOVIR
     Dosage: UNK
     Route: 064
     Dates: start: 20180205
  2. TENOFOVIR [Suspect]
     Active Substance: TENOFOVIR
     Dosage: UNK
     Route: 064
     Dates: start: 20100610
  3. TENOFOVIR [Suspect]
     Active Substance: TENOFOVIR
     Dosage: UNK
     Route: 064
  4. TENOFOVIR [Suspect]
     Active Substance: TENOFOVIR
     Dosage: UNK
     Route: 064
  5. EMTRICITABINE\TENOFOVIR [Suspect]
     Active Substance: EMTRICITABINE\TENOFOVIR
     Dosage: UNK
     Route: 064
     Dates: start: 20171006, end: 20180205
  6. LABETALOL [Suspect]
     Active Substance: LABETALOL\LABETALOL HYDROCHLORIDE
     Dosage: UNK
     Route: 064
  7. LABETALOL [Suspect]
     Active Substance: LABETALOL\LABETALOL HYDROCHLORIDE
     Dosage: UNK
     Route: 064
     Dates: start: 20090101, end: 20100610
  8. LABETALOL [Suspect]
     Active Substance: LABETALOL\LABETALOL HYDROCHLORIDE
     Dosage: UNK
     Route: 064
  9. LABETALOL [Suspect]
     Active Substance: LABETALOL\LABETALOL HYDROCHLORIDE
     Dosage: UNK
     Route: 064
  10. LABETALOL [Suspect]
     Active Substance: LABETALOL\LABETALOL HYDROCHLORIDE
     Dosage: UNK
     Route: 064
  11. LABETALOL [Suspect]
     Active Substance: LABETALOL\LABETALOL HYDROCHLORIDE
     Dosage: UNK
     Route: 064
  12. LABETALOL [Suspect]
     Active Substance: LABETALOL\LABETALOL HYDROCHLORIDE
     Dosage: UNK
     Route: 064
  13. METFORMIN HYDROCHLORIDE [Suspect]
     Active Substance: METFORMIN HYDROCHLORIDE
     Dosage: UNK
     Route: 064
  14. METFORMIN HYDROCHLORIDE [Suspect]
     Active Substance: METFORMIN HYDROCHLORIDE
     Dosage: UNK
     Route: 064
     Dates: start: 20090101, end: 20100610
  15. METFORMIN HYDROCHLORIDE [Suspect]
     Active Substance: METFORMIN HYDROCHLORIDE
     Dosage: UNK
     Route: 064
  16. METFORMIN HYDROCHLORIDE [Suspect]
     Active Substance: METFORMIN HYDROCHLORIDE
     Dosage: UNK
     Route: 064
  17. METFORMIN HYDROCHLORIDE [Suspect]
     Active Substance: METFORMIN HYDROCHLORIDE
     Dosage: UNK
     Route: 064
  18. EFAVIRENZ [Suspect]
     Active Substance: EFAVIRENZ
     Dosage: UNK
     Route: 064
  19. EFAVIRENZ [Suspect]
     Active Substance: EFAVIRENZ
     Dosage: UNK
     Route: 064
     Dates: start: 20171006, end: 20180205
  20. EFAVIRENZ [Suspect]
     Active Substance: EFAVIRENZ
     Dosage: UNK
     Route: 064
  21. EFAVIRENZ [Suspect]
     Active Substance: EFAVIRENZ
     Dosage: UNK
     Route: 064
  22. EFAVIRENZ [Suspect]
     Active Substance: EFAVIRENZ
     Dosage: UNK
     Route: 064
  23. EFAVIRENZ [Suspect]
     Active Substance: EFAVIRENZ
     Dosage: UNK
     Route: 064
  24. ISENTRESS [Suspect]
     Active Substance: RALTEGRAVIR POTASSIUM
     Dosage: UNK
     Route: 064
     Dates: start: 20100610
  25. ISENTRESS [Suspect]
     Active Substance: RALTEGRAVIR POTASSIUM
     Dosage: UNK
     Route: 064
  26. ISENTRESS [Suspect]
     Active Substance: RALTEGRAVIR POTASSIUM
     Dosage: UNK
     Route: 064
  27. ISENTRESS [Suspect]
     Active Substance: RALTEGRAVIR POTASSIUM
     Dosage: UNK
     Route: 064
  28. TRUVADA [Suspect]
     Active Substance: EMTRICITABINE\TENOFOVIR DISOPROXIL FUMARATE
     Dosage: UNK
     Route: 064
  29. TRUVADA [Suspect]
     Active Substance: EMTRICITABINE\TENOFOVIR DISOPROXIL FUMARATE
     Dosage: UNK
     Route: 064
  30. TRUVADA [Suspect]
     Active Substance: EMTRICITABINE\TENOFOVIR DISOPROXIL FUMARATE
     Dosage: UNK
     Route: 064
  31. TRUVADA [Suspect]
     Active Substance: EMTRICITABINE\TENOFOVIR DISOPROXIL FUMARATE
     Dosage: UNK
     Route: 064
  32. TRUVADA [Suspect]
     Active Substance: EMTRICITABINE\TENOFOVIR DISOPROXIL FUMARATE
     Dosage: UNK
     Route: 064
     Dates: start: 20171006
  33. TRUVADA [Suspect]
     Active Substance: EMTRICITABINE\TENOFOVIR DISOPROXIL FUMARATE
     Dosage: UNK
     Route: 064
     Dates: start: 20171006
  34. ZIDOVUDINE [Suspect]
     Active Substance: ZIDOVUDINE
     Dosage: UNK
     Route: 064
  35. ZIDOVUDINE [Suspect]
     Active Substance: ZIDOVUDINE
     Dosage: UNK
     Route: 064
  36. ZIDOVUDINE [Suspect]
     Active Substance: ZIDOVUDINE
     Dosage: UNK
     Route: 064
  37. ZIDOVUDINE [Suspect]
     Active Substance: ZIDOVUDINE
     Dosage: UNK
     Route: 064
     Dates: start: 20090110, end: 20100610
  38. ZIDOVUDINE [Suspect]
     Active Substance: ZIDOVUDINE
     Dosage: UNK
     Route: 064
     Dates: start: 20100610, end: 20100610
  39. FOLIC ACID [Suspect]
     Active Substance: FOLIC ACID
     Dosage: UNK
     Route: 064
  40. FOLIC ACID [Suspect]
     Active Substance: FOLIC ACID
     Dosage: UNK
     Route: 064
  41. FOLIC ACID [Suspect]
     Active Substance: FOLIC ACID
     Dosage: UNK
     Route: 064
  42. FOLIC ACID [Suspect]
     Active Substance: FOLIC ACID
     Dosage: UNK
     Route: 064
  43. FOLIC ACID [Suspect]
     Active Substance: FOLIC ACID
     Dosage: UNK
     Route: 064
  44. FOLIC ACID [Suspect]
     Active Substance: FOLIC ACID
     Dosage: UNK
     Route: 064
  45. FOLIC ACID [Suspect]
     Active Substance: FOLIC ACID
     Dosage: UNK
     Route: 064
  46. LAMIVUDINE [Suspect]
     Active Substance: LAMIVUDINE
     Dosage: UNK
     Route: 064
  47. LAMIVUDINE [Suspect]
     Active Substance: LAMIVUDINE
     Dosage: UNK
     Route: 064
  48. LAMIVUDINE [Suspect]
     Active Substance: LAMIVUDINE
     Dosage: UNK
     Route: 064
     Dates: start: 20100610, end: 20100610
  49. LAMIVUDINE [Suspect]
     Active Substance: LAMIVUDINE
     Dosage: UNK
     Route: 064
     Dates: start: 20090101, end: 20100610
  50. LOPINAVIR\RITONAVIR [Suspect]
     Active Substance: LOPINAVIR\RITONAVIR
     Dosage: UNK
     Route: 065
  51. LOPINAVIR\RITONAVIR [Suspect]
     Active Substance: LOPINAVIR\RITONAVIR
     Dosage: UNK
     Route: 065
  52. LOPINAVIR\RITONAVIR [Suspect]
     Active Substance: LOPINAVIR\RITONAVIR
     Dosage: UNK
     Route: 065
  53. LOPINAVIR\RITONAVIR [Suspect]
     Active Substance: LOPINAVIR\RITONAVIR
     Dosage: UNK
     Route: 064
  54. LOPINAVIR\RITONAVIR [Suspect]
     Active Substance: LOPINAVIR\RITONAVIR
     Dosage: UNK
     Route: 064
  55. LOPINAVIR\RITONAVIR [Suspect]
     Active Substance: LOPINAVIR\RITONAVIR
     Dosage: UNK
     Route: 065
  56. NEVIRAPINE [Suspect]
     Active Substance: NEVIRAPINE
     Dosage: UNK
     Route: 064
  57. NEVIRAPINE [Suspect]
     Active Substance: NEVIRAPINE
     Dosage: UNK
     Route: 064
     Dates: start: 20090101, end: 20100610
  58. NEVIRAPINE [Suspect]
     Active Substance: NEVIRAPINE
     Dosage: UNK
     Route: 064
  59. NEVIRAPINE [Suspect]
     Active Substance: NEVIRAPINE
     Dosage: UNK
     Route: 064
  60. NEVIRAPINE [Suspect]
     Active Substance: NEVIRAPINE
     Dosage: UNK
     Route: 064
  61. EMTRICITABINE [Suspect]
     Active Substance: EMTRICITABINE
     Dosage: UNK
     Route: 064
     Dates: start: 20171006
  62. EMTRICITABINE [Suspect]
     Active Substance: EMTRICITABINE
     Dosage: UNK
     Route: 064
  63. EMTRICITABINE [Suspect]
     Active Substance: EMTRICITABINE
     Dosage: UNK
     Route: 064
  64. EMTRICITABINE [Suspect]
     Active Substance: EMTRICITABINE
     Dosage: UNK
     Route: 064
     Dates: start: 20180205
  65. EMTRICITABINE [Suspect]
     Active Substance: EMTRICITABINE
     Dosage: UNK
     Route: 064
  66. KALETRA [Suspect]
     Active Substance: LOPINAVIR\RITONAVIR
     Dosage: UNK
     Route: 064
     Dates: start: 20100610
  67. KALETRA [Suspect]
     Active Substance: LOPINAVIR\RITONAVIR
     Dosage: UNK
     Route: 064
     Dates: start: 20100610
  68. KALETRA [Suspect]
     Active Substance: LOPINAVIR\RITONAVIR
     Dosage: UNK
     Route: 064
     Dates: start: 20100610
  69. KALETRA [Suspect]
     Active Substance: LOPINAVIR\RITONAVIR
     Dosage: UNK
     Route: 064
  70. EFAVIRENZ [Suspect]
     Active Substance: EFAVIRENZ
     Dosage: UNK
     Route: 064
  71. EFAVIRENZ [Suspect]
     Active Substance: EFAVIRENZ
     Dosage: UNK
     Route: 064
     Dates: start: 20171006, end: 20180205
  72. EFAVIRENZ [Suspect]
     Active Substance: EFAVIRENZ
     Dosage: UNK
     Route: 064
  73. EFAVIRENZ [Suspect]
     Active Substance: EFAVIRENZ
     Dosage: UNK
     Route: 064
  74. EFAVIRENZ [Suspect]
     Active Substance: EFAVIRENZ
     Dosage: UNK
     Route: 064
  75. LOPINAVIR [Suspect]
     Active Substance: LOPINAVIR
     Dosage: UNK
     Route: 064
  76. LOPINAVIR [Suspect]
     Active Substance: LOPINAVIR
     Dosage: UNK
     Route: 064
  77. LOPINAVIR [Suspect]
     Active Substance: LOPINAVIR
     Dosage: UNK
     Route: 064
  78. LOPINAVIR [Suspect]
     Active Substance: LOPINAVIR
     Dosage: UNK
     Route: 064
     Dates: start: 20100610, end: 20100610
  79. INSULIN ASPART [Suspect]
     Active Substance: INSULIN ASPART
     Dosage: UNK
     Route: 064
  80. INSULIN ASPART [Suspect]
     Active Substance: INSULIN ASPART
     Dosage: UNK
     Route: 064
  81. INSULIN ASPART [Suspect]
     Active Substance: INSULIN ASPART
     Dosage: UNK
     Route: 064
  82. INSULIN ASPART [Suspect]
     Active Substance: INSULIN ASPART
     Dosage: UNK
     Route: 065
  83. INSULIN ASPART [Suspect]
     Active Substance: INSULIN ASPART
     Dosage: UNK
     Route: 064
  84. INSULIN ASPART [Suspect]
     Active Substance: INSULIN ASPART
     Dosage: UNK
     Route: 065
  85. RITONAVIR [Suspect]
     Active Substance: RITONAVIR
     Dosage: UNK
     Route: 064
  86. RITONAVIR [Suspect]
     Active Substance: RITONAVIR
     Dosage: UNK
     Route: 064
     Dates: start: 20100610
  87. FOLATE SODIUM [Suspect]
     Active Substance: FOLATE SODIUM
     Dosage: UNK
     Route: 064
  88. VITAMIN B12 [Suspect]
     Active Substance: CYANOCOBALAMIN
     Dosage: UNK
     Route: 064
  89. VITAMIN B12 [Suspect]
     Active Substance: CYANOCOBALAMIN
     Dosage: UNK
     Route: 064
     Dates: start: 20100610
  90. COBAMAMIDE [Suspect]
     Active Substance: COBAMAMIDE
     Dosage: UNK, (MATERNAL DOSE: UNK )
     Route: 064
  91. COBAMAMIDE [Suspect]
     Active Substance: COBAMAMIDE
     Dosage: UNK
     Route: 065

REACTIONS (10)
  - Cleft lip and palate [Fatal]
  - Trisomy 18 [Fatal]
  - Hydrops foetalis [Fatal]
  - Ultrasound antenatal screen [Fatal]
  - Aspartate aminotransferase increased [Fatal]
  - Alanine aminotransferase increased [Fatal]
  - Hepatic cytolysis [Fatal]
  - Off label use [Fatal]
  - Intentional product use issue [Fatal]
  - Foetal exposure during pregnancy [Fatal]

NARRATIVE: CASE EVENT DATE: 20120521
